FAERS Safety Report 6848622-2 (Version None)
Quarter: 2010Q3

REPORT INFORMATION
  Report Type: 
  Country: None (occurrence: None)
  Receive Date: 20100716
  Receipt Date: 20100715
  Transmission Date: 20110219
  Serious: Yes (Life-Threatening)
  Sender: FDA-Public Use
  Company Number: GXKR2010DE06310

PATIENT
  Age: 80 Year
  Sex: Male
  Weight: 51 kg

DRUGS (3)
  1. TRAMADOLOR (NGX) [Interacting]
     Indication: RIB FRACTURE
     Dosage: 5 DF/DAILY
     Route: 048
     Dates: start: 20100401
  2. FENTANYL [Interacting]
     Indication: RIB FRACTURE
     Dosage: UNK
     Route: 062
     Dates: start: 20100401
  3. ARCOXIA [Suspect]
     Indication: RIB FRACTURE
     Dosage: 1 DF/DAILY
     Route: 048

REACTIONS (7)
  - CONSTIPATION [None]
  - DEHYDRATION [None]
  - DEPRESSED LEVEL OF CONSCIOUSNESS [None]
  - SOMNOLENCE [None]
  - SUBILEUS [None]
  - URINARY TRACT INFECTION [None]
  - VOMITING [None]
